FAERS Safety Report 14863741 (Version 1)
Quarter: 2018Q2

REPORT INFORMATION
  Report Type: Spontaneous
  Country: SG (occurrence: SG)
  Receive Date: 20180508
  Receipt Date: 20180508
  Transmission Date: 20180711
  Serious: Yes (Hospitalization)
  Sender: FDA-Public Use
  Company Number: SG-ASTRAZENECA-2018SE58152

PATIENT
  Age: 26997 Day
  Sex: Female

DRUGS (2)
  1. TAGRISSO [Suspect]
     Active Substance: OSIMERTINIB
     Dosage: 80 MG
     Route: 048
     Dates: start: 20180301
  2. IRESSA [Concomitant]
     Active Substance: GEFITINIB

REACTIONS (2)
  - Arterial rupture [Unknown]
  - Encephalopathy [Unknown]

NARRATIVE: CASE EVENT DATE: 20180301
